FAERS Safety Report 9116843 (Version 1)
Quarter: 2013Q1

REPORT INFORMATION
  Report Type: Spontaneous
  Country: NO (occurrence: NO)
  Receive Date: 20130225
  Receipt Date: 20130225
  Transmission Date: 20140127
  Serious: Yes (Hospitalization, Disabling)
  Sender: FDA-Public Use
  Company Number: NO-JNJFOC-20130209222

PATIENT
  Sex: Male

DRUGS (8)
  1. REMICADE [Suspect]
     Indication: CROHN^S DISEASE
     Dosage: 4 YEARS
     Route: 042
     Dates: start: 20080903, end: 20120508
  2. SERETIDE [Concomitant]
     Indication: ASTHMA
     Dosage: 1 DOSAGE FORM (DF) = 50 MICRGRAM SAMETEROL AND 500 MICROGRAM FLUTICASONE PROPIONATE
     Route: 055
  3. SINGULAIR [Concomitant]
     Route: 048
  4. VENTOLIN [Concomitant]
     Indication: ASTHMA
     Dosage: WHEN NEEDED
     Route: 055
  5. XANOR [Concomitant]
     Route: 048
  6. IMODIUM [Concomitant]
     Route: 048
  7. KESTINE [Concomitant]
     Route: 065
  8. TOLVON [Concomitant]
     Route: 048

REACTIONS (2)
  - Leukocytoclastic vasculitis [Recovering/Resolving]
  - Asthma [Unknown]
